FAERS Safety Report 6413192-X (Version None)
Quarter: 2009Q4

REPORT INFORMATION
  Report Type: 
  Country: None (occurrence: None)
  Receive Date: 20091026
  Receipt Date: 20091012
  Transmission Date: 20100525
  Serious: Yes (Other)
  Sender: FDA-Public Use
  Company Number: PHHY2009MX44417

PATIENT
  Sex: Female

DRUGS (6)
  1. RASILEZ [Suspect]
     Indication: HYPERTENSION
     Dosage: 1 TABLET (300 MG) DAILY
     Route: 048
     Dates: start: 20090701, end: 20090915
  2. BLOPRESS PLUS [Concomitant]
  3. TENORMIN [Concomitant]
  4. GLUCOPHAGE [Concomitant]
  5. LYRICA [Concomitant]
  6. LISINOPRIL [Concomitant]

REACTIONS (3)
  - BLOOD PRESSURE INCREASED [None]
  - DISCOMFORT [None]
  - OEDEMA PERIPHERAL [None]
